FAERS Safety Report 25263603 (Version 4)
Quarter: 2025Q3

REPORT INFORMATION
  Report Type: Spontaneous
  Country: CA (occurrence: CA)
  Receive Date: 20250502
  Receipt Date: 20250711
  Transmission Date: 20251021
  Serious: Yes (Other)
  Sender: PFIZER
  Company Number: CA-PFIZER INC-202500092630

PATIENT
  Age: 88 Year
  Sex: Female

DRUGS (3)
  1. CIBINQO [Suspect]
     Active Substance: ABROCITINIB
     Indication: Dermatitis atopic
     Dosage: 100 MG, 1X/DAY
     Route: 048
     Dates: start: 20230703, end: 202307
  2. CIBINQO [Suspect]
     Active Substance: ABROCITINIB
     Dosage: 50 MG, 1X/DAY
     Route: 048
     Dates: start: 202307, end: 2023
  3. CIBINQO [Suspect]
     Active Substance: ABROCITINIB
     Dosage: 100 MG, 1X/DAY
     Route: 048
     Dates: start: 2023, end: 2025

REACTIONS (1)
  - Cerebrovascular accident [Unknown]

NARRATIVE: CASE EVENT DATE: 20250101
